FAERS Safety Report 18614898 (Version 5)
Quarter: 2021Q2

REPORT INFORMATION
  Report Type: Report from Study
  Country: US (occurrence: US)
  Receive Date: 20201214
  Receipt Date: 20210602
  Transmission Date: 20210717
  Serious: Yes (Hospitalization, Other)
  Sender: FDA-Public Use
  Company Number: US-SHIRE-US202011200

PATIENT
  Age: 47 Year
  Sex: Female

DRUGS (1)
  1. CUVITRU [Suspect]
     Active Substance: HUMAN IMMUNOGLOBULIN G
     Indication: IMMUNODEFICIENCY COMMON VARIABLE
     Dosage: UNK
     Route: 065

REACTIONS (23)
  - Impaired healing [Unknown]
  - Adrenal insufficiency [Unknown]
  - Anaphylactic reaction [Unknown]
  - Heart rate increased [Unknown]
  - Device related infection [Unknown]
  - Heart rate abnormal [Unknown]
  - Feeling abnormal [Unknown]
  - Dyspnoea [Unknown]
  - Central venous catheter removal [Unknown]
  - Influenza like illness [Unknown]
  - Heart rate irregular [Unknown]
  - Inappropriate schedule of product administration [Unknown]
  - Central venous catheterisation [Unknown]
  - Syncope [Unknown]
  - Incision site haemorrhage [Unknown]
  - Weight decreased [Unknown]
  - Illness [Unknown]
  - Escherichia infection [Unknown]
  - Incision site pain [Unknown]
  - Fatigue [Unknown]
  - Contusion [Unknown]
  - Memory impairment [Unknown]
  - Body temperature fluctuation [Unknown]

NARRATIVE: CASE EVENT DATE: 20210122
